FAERS Safety Report 6237090-X (Version None)
Quarter: 2009Q2

REPORT INFORMATION
  Report Type: 
  Country: None (occurrence: None)
  Receive Date: 20090619
  Receipt Date: 20090403
  Transmission Date: 20091009
  Serious: No
  Sender: FDA-Public Use
  Company Number: US-ASTRAZENECA-2009UW08518

PATIENT
  Age: 884 Month
  Sex: Male
  Weight: 90.7 kg

DRUGS (12)
  1. SYMBICORT [Suspect]
     Dosage: 640MCG/ 2 PUFFS
     Route: 055
     Dates: start: 20090306
  2. ASPIRIN [Concomitant]
     Route: 048
  3. FISH OIL [Concomitant]
     Route: 048
  4. CALCIUM W/ VIT D [Concomitant]
     Dosage: 2 CAPSULES
     Route: 048
  5. NORVASC [Concomitant]
     Route: 048
  6. M.V.I. [Concomitant]
     Route: 048
  7. GLUCOSAMINE [Concomitant]
     Route: 048
  8. PRILOSEC [Concomitant]
     Route: 048
  9. PAXIL [Concomitant]
     Indication: DEPRESSION
     Route: 048
  10. ASCORBIC ACID [Concomitant]
     Route: 048
  11. HYTRIN [Concomitant]
     Route: 048
  12. ZOCOR [Concomitant]
     Route: 048

REACTIONS (5)
  - COUGH [None]
  - DYSPHONIA [None]
  - DYSPNOEA [None]
  - LUNG NEOPLASM [None]
  - OROPHARYNGEAL PAIN [None]
